FAERS Safety Report 7674037 (Version 3)
Quarter: 2014Q2

REPORT INFORMATION
  Report Type: Report from Study
  Country: US (occurrence: US)
  Receive Date: 20101118
  Receipt Date: 20140512
  Transmission Date: 20141212
  Serious: Yes (Hospitalization)
  Sender: FDA-Public Use
  Company Number: US-ACTELION-A-US2010-41446

PATIENT
  Age: 58 Year
  Sex: Female

DRUGS (3)
  1. TRACLEER [Suspect]
     Indication: PULMONARY ARTERIAL HYPERTENSION
     Dosage: UNK MG, UNK
     Route: 048
     Dates: start: 20081219
  2. ASA [Suspect]
     Dosage: UNK
     Route: 048
     Dates: end: 201010
  3. REVATIO [Concomitant]

REACTIONS (5)
  - Large intestine polyp [Recovered/Resolved]
  - Large intestinal haemorrhage [Recovered/Resolved]
  - Hypertension [Unknown]
  - Colonoscopy [Recovered/Resolved]
  - Large intestinal polypectomy [Recovered/Resolved]
